FAERS Safety Report 13573930 (Version 1)
Quarter: 2017Q2

REPORT INFORMATION
  Report Type: Report from Study
  Country: BR (occurrence: BR)
  Receive Date: 20170523
  Receipt Date: 20170523
  Transmission Date: 20170830
  Serious: Yes (Life-Threatening, Other)
  Sender: FDA-Public Use
  Company Number: PHHY2017BR075433

PATIENT
  Sex: Female
  Weight: 90 kg

DRUGS (1)
  1. OCTREOTIDE, LONG ACTING [Suspect]
     Active Substance: OCTREOTIDE ACETATE
     Indication: ACROMEGALY
     Dosage: 20 MG, QMO
     Route: 065

REACTIONS (9)
  - Crying [Unknown]
  - Headache [Unknown]
  - Nervousness [Unknown]
  - Visual impairment [Unknown]
  - Depression [Unknown]
  - Pain [Unknown]
  - Feeling abnormal [Unknown]
  - Hyperthyroidism [Unknown]
  - Dengue fever [Unknown]
